FAERS Safety Report 17840310 (Version 1)
Quarter: 2020Q2

REPORT INFORMATION
  Report Type: Spontaneous
  Country: US (occurrence: US)
  Receive Date: 20200529
  Receipt Date: 20200529
  Transmission Date: 20200714
  Serious: No
  Sender: FDA-Public Use
  Company Number: US-TEVA-2020-US-1240788

PATIENT
  Sex: Male

DRUGS (1)
  1. METOPROLOL SUCCINATE ACTAVIS [Suspect]
     Active Substance: METOPROLOL SUCCINATE
     Indication: BLOOD PRESSURE ABNORMAL
     Route: 065

REACTIONS (6)
  - Product shape issue [Unknown]
  - Feeling abnormal [Unknown]
  - Blood pressure increased [Unknown]
  - Palpitations [Unknown]
  - Nervousness [Unknown]
  - Drug ineffective [Unknown]
